FAERS Safety Report 16841476 (Version 2)
Quarter: 2019Q3

REPORT INFORMATION
  Report Type: Spontaneous
  Country: US (occurrence: US)
  Receive Date: 20190923
  Receipt Date: 20190927
  Transmission Date: 20191005
  Serious: No
  Sender: FDA-Public Use
  Company Number: US-BAYER-2019-171960

PATIENT

DRUGS (1)
  1. ALIQOPA [Suspect]
     Active Substance: COPANLISIB

REACTIONS (1)
  - Lipase increased [Recovered/Resolved]
